FAERS Safety Report 5607967-4 (Version None)
Quarter: 2008Q1

REPORT INFORMATION
  Report Type: 
  Country: None (occurrence: None)
  Receive Date: 20080130
  Receipt Date: 20080124
  Transmission Date: 20080703
  Serious: Yes (Hospitalization)
  Sender: FDA-Public Use
  Company Number: A0705192A

PATIENT
  Age: 42 Year
  Sex: Female

DRUGS (4)
  1. ZOFRAN [Suspect]
     Dosage: 4MG SINGLE DOSE
     Route: 042
     Dates: start: 20080115, end: 20080115
  2. NEXIUM [Concomitant]
  3. VERSED [Concomitant]
  4. DEXAMETHASONE TAB [Concomitant]
     Route: 042

REACTIONS (6)
  - CHEST PAIN [None]
  - HYPERHIDROSIS [None]
  - MUSCULOSKELETAL PAIN [None]
  - MYOCARDIAL INFARCTION [None]
  - PAIN IN EXTREMITY [None]
  - VOMITING [None]
